FAERS Safety Report 23167093 (Version 1)
Quarter: 2023Q4

REPORT INFORMATION
  Report Type: Spontaneous
  Country: JP (occurrence: JP)
  Receive Date: 20231109
  Receipt Date: 20231109
  Transmission Date: 20240110
  Serious: Yes (Hospitalization, Other)
  Sender: FDA-Public Use
  Company Number: JP-SA-2023SA336798

PATIENT
  Age: 50 Year
  Sex: Female

DRUGS (2)
  1. LIBTAYO [Suspect]
     Active Substance: CEMIPLIMAB-RWLC
     Indication: Cervix carcinoma
     Dosage: DAILY DOSE: 350 MG
     Route: 041
     Dates: start: 202306, end: 2023
  2. PEMBROLIZUMAB [Suspect]
     Active Substance: PEMBROLIZUMAB
     Indication: Cervix carcinoma
     Dosage: UNK
     Route: 065
     Dates: start: 2023, end: 2023

REACTIONS (3)
  - Ileus [Unknown]
  - Metastases to peritoneum [Unknown]
  - Immune-mediated enterocolitis [Unknown]

NARRATIVE: CASE EVENT DATE: 20230101
